FAERS Safety Report 23241100 (Version 1)
Quarter: 2023Q4

REPORT INFORMATION
  Report Type: Spontaneous
  Country: PL (occurrence: PL)
  Receive Date: 20231129
  Receipt Date: 20231129
  Transmission Date: 20240110
  Serious: Yes (Disabling, Other)
  Sender: FDA-Public Use
  Company Number: PL-LIPOMED-20230083

PATIENT
  Age: 55 Year
  Sex: Male

DRUGS (12)
  1. BORTEZOMIB [Suspect]
     Active Substance: BORTEZOMIB
     Indication: Product used for unknown indication
     Dosage: ACCORDING TO STANDARD PROTOCOL OF BORTEZOMIB, CYCLOPHOSPHAMIDE, DEXAMETHASONE, FOUR COURSES
     Route: 065
     Dates: end: 201802
  2. CYCLOPHOSPHAMIDE [Suspect]
     Active Substance: CYCLOPHOSPHAMIDE
     Indication: Plasma cell myeloma
     Dosage: ACCORDING TO STANDARD PROTOCOL OF BORTEZOMIB, CYCLOPHOSPHAMIDE, DEXAMETHASONE, FOUR COURSES
     Route: 065
     Dates: end: 201802
  3. CYCLOPHOSPHAMIDE [Suspect]
     Active Substance: CYCLOPHOSPHAMIDE
     Dosage: FOUR COURSES OF CYCLOPHOSPHAMIDE, THALIDOMIDE, DEXAMETHASONE
     Route: 065
     Dates: end: 201204
  4. CYCLOPHOSPHAMIDE [Suspect]
     Active Substance: CYCLOPHOSPHAMIDE
     Dosage: ONE COURSE OF CYCLOPHOSPHAMIDE, DXAMETHASONE
     Route: 065
  5. CYCLOPHOSPHAMIDE [Suspect]
     Active Substance: CYCLOPHOSPHAMIDE
     Dosage: TWO CONSECUTIVE COURSES OF CYCLOPHOSPHAMIDE, THALIDOMIDE, DEXAMETHASONE
     Route: 065
  6. DEXAMETHASONE [Suspect]
     Active Substance: DEXAMETHASONE
     Dosage: ACCORDING TO STANDARD PROTOCOL OF BORTEZOMIB, CYCLOPHOSPHAMIDE, DEXAMETHASONE, FOUR COURSES
     Route: 065
     Dates: end: 201802
  7. DEXAMETHASONE [Suspect]
     Active Substance: DEXAMETHASONE
     Indication: Plasma cell myeloma
     Dosage: FOUR COURSES OF CYCLOPHOSPHAMIDE, THALIDOMIDE, DEXAMETHASONE
     Route: 065
     Dates: end: 201204
  8. DEXAMETHASONE [Suspect]
     Active Substance: DEXAMETHASONE
     Dosage: ONE COURSE OF CYCLOPHOSPHAMIDE, DXAMETHASONE
     Route: 065
  9. DEXAMETHASONE [Suspect]
     Active Substance: DEXAMETHASONE
     Dosage: TWO CONSECUTIVE COURSES OF CYCLOPHOSPHAMIDE, THALIDOMIDE, DEXAMETHASONE
     Route: 065
  10. THALIDOMIDE [Suspect]
     Active Substance: THALIDOMIDE
     Indication: Plasma cell myeloma
     Dosage: FOUR COURSES OF CYCLOPHOSPHAMIDE, THALIDOMIDE, DEXAMETHASONE
     Route: 065
     Dates: end: 201204
  11. THALIDOMIDE [Suspect]
     Active Substance: THALIDOMIDE
     Dosage: TWO CONSECUTIVE COURSES OF CYCLOPHOSPHAMIDE, THALIDOMIDE, DEXAMETHASONE
     Route: 065
  12. MELPHALAN [Concomitant]
     Active Substance: MELPHALAN
     Indication: Bone marrow conditioning regimen
     Dosage: HIGH-DOSE
     Route: 065
     Dates: start: 201308

REACTIONS (6)
  - Peripheral ischaemia [Recovered/Resolved with Sequelae]
  - Embolism arterial [Recovered/Resolved with Sequelae]
  - Limb amputation [Recovered/Resolved with Sequelae]
  - Plasma cell myeloma recurrent [Recovering/Resolving]
  - Polyneuropathy [Unknown]
  - Respiratory tract infection [Unknown]

NARRATIVE: CASE EVENT DATE: 20120401
